FAERS Safety Report 9308354 (Version 3)
Quarter: 2014Q1

REPORT INFORMATION
  Report Type: Report from Study
  Country: ES (occurrence: ES)
  Receive Date: 20130524
  Receipt Date: 20140121
  Transmission Date: 20141002
  Serious: Yes (Death, Life-Threatening, Hospitalization)
  Sender: FDA-Public Use
  Company Number: ES-BAYER-2013-064035

PATIENT
  Age: 70 Year
  Sex: Male
  Weight: 69 kg

DRUGS (5)
  1. ALPHARADIN [Suspect]
     Indication: PROSTATE CANCER
     Dosage: 50 KBQ/KG
     Route: 042
     Dates: start: 20130320, end: 20130320
  2. ALPHARADIN [Suspect]
     Indication: METASTASES TO BONE
     Dosage: 50 KBQ/KG
     Route: 042
     Dates: start: 20130417, end: 20130417
  3. ALPHARADIN [Suspect]
     Indication: PROSTATE CANCER
     Dosage: 50 KBQ/KG
     Route: 042
     Dates: start: 20130515, end: 20130515
  4. LYRICA [Concomitant]
     Indication: PAIN
     Dosage: DAILY DOSE 150 MG
     Route: 048
     Dates: end: 20130520
  5. MOVICOL [Concomitant]
     Indication: DYSPEPSIA
     Dosage: 1 DF, BID
     Route: 048
     Dates: end: 20130520

REACTIONS (4)
  - Myocardial infarction [Fatal]
  - Lymphocyte count increased [Not Recovered/Not Resolved]
  - Platelet count decreased [Not Recovered/Not Resolved]
  - Pyrexia [Not Recovered/Not Resolved]
